FAERS Safety Report 7306016-X (Version None)
Quarter: 2011Q1

REPORT INFORMATION
  Report Type: 
  Country: None (occurrence: None)
  Receive Date: 20110222
  Receipt Date: 20110214
  Transmission Date: 20110831
  Serious: Yes (Death, Other)
  Sender: FDA-Public Use
  Company Number: JP-MPIJNJ-2007_01829

PATIENT

DRUGS (9)
  1. PLATELETS [Concomitant]
     Indication: PLATELET COUNT DECREASED
     Dosage: 10.00 IU, UNK
     Route: 042
     Dates: start: 20070208
  2. PREDONINE [Concomitant]
     Indication: BRONCHITIS
     Dosage: 50.00 MG, UNK
     Route: 042
     Dates: start: 20070227, end: 20070227
  3. VELCADE [Suspect]
     Indication: MULTIPLE MYELOMA
     Dosage: 1.8 MG, CYCLIC
     Route: 042
     Dates: start: 20070223, end: 20070330
  4. MAXIPIME [Concomitant]
     Indication: BRONCHITIS
     Dosage: 4.00 G, UNK
     Route: 042
     Dates: start: 20070227, end: 20070302
  5. GRAN [Concomitant]
     Indication: NEUTROPHIL COUNT DECREASED
     Dosage: 75.00 UG, UNK
     Route: 058
     Dates: start: 20070227, end: 20070403
  6. VELCADE [Suspect]
     Dosage: 1.4 MG, CYCLIC
     Route: 042
     Dates: start: 20070525, end: 20070528
  7. DEXAMETHASONE [Concomitant]
     Indication: MULTIPLE MYELOMA
     Dosage: 8.00 MG, UNK
     Route: 042
     Dates: start: 20070223, end: 20070226
  8. DEXAMETHASONE [Concomitant]
     Dosage: 20.00 MG A DAY FOR 8 DAYS.
     Dates: start: 20070320, end: 20070528
  9. RED BLOOD CELLS, CONCENTRATED [Concomitant]
     Indication: ANAEMIA
     Dosage: 2.00 IU, UNK
     Route: 042
     Dates: start: 20070217

REACTIONS (3)
  - NEUTROPHIL COUNT DECREASED [None]
  - MULTIPLE MYELOMA [None]
  - DIABETES MELLITUS [None]
